FAERS Safety Report 8204783-4 (Version None)
Quarter: 2012Q1

REPORT INFORMATION
  Report Type: 
  Country: None (occurrence: None)
  Receive Date: 20120313
  Receipt Date: 20120302
  Transmission Date: 20120608
  Serious: Yes (Other)
  Sender: FDA-Public Use
  Company Number: US-JNJFOC-20120302442

PATIENT
  Sex: Female
  Weight: 68.95 kg

DRUGS (4)
  1. VICODIN [Concomitant]
  2. IMURAN [Concomitant]
  3. PREDNISONE [Concomitant]
  4. REMICADE [Suspect]
     Indication: RHEUMATOID ARTHRITIS
     Route: 042
     Dates: start: 20010101

REACTIONS (1)
  - MALIGNANT MELANOMA [None]
